FAERS Safety Report 8480373-3 (Version None)
Quarter: 2012Q3

REPORT INFORMATION
  Report Type: 
  Country: None (occurrence: None)
  Receive Date: 20120702
  Receipt Date: 20120619
  Transmission Date: 20120928
  Serious: Yes (Life-Threatening)
  Sender: FDA-Public Use
  Company Number: JP-ROCHE-1072232

PATIENT
  Sex: Male
  Weight: 57 kg

DRUGS (5)
  1. ACTEMRA [Suspect]
     Indication: RHEUMATOID ARTHRITIS
     Route: 041
     Dates: start: 20120328, end: 20120511
  2. RHEUMATREX [Suspect]
     Dosage: AMOUNT 3
     Route: 048
     Dates: start: 20110620, end: 20120511
  3. RHEUMATREX [Suspect]
     Indication: RHEUMATOID ARTHRITIS
     Route: 048
     Dates: start: 20010101, end: 20101101
  4. FOLIAMIN [Concomitant]
     Indication: PROPHYLAXIS
     Route: 048
     Dates: start: 20110620, end: 20120511
  5. CELEBREX [Concomitant]
     Indication: RHEUMATOID ARTHRITIS
     Route: 048
     Dates: start: 20120104, end: 20120511

REACTIONS (5)
  - LUNG SQUAMOUS CELL CARCINOMA STAGE UNSPECIFIED [None]
  - BRAIN NEOPLASM [None]
  - PNEUMONIA [None]
  - LUNG NEOPLASM MALIGNANT [None]
  - ALTERED STATE OF CONSCIOUSNESS [None]
